FAERS Safety Report 12632351 (Version 2)
Quarter: 2016Q3

REPORT INFORMATION
  Report Type: Spontaneous
  Country: US (occurrence: US)
  Receive Date: 20160808
  Receipt Date: 20160808
  Transmission Date: 20161109
  Serious: No
  Sender: FDA-Public Use
  Company Number: US-BEH-2016062606

PATIENT
  Age: 63 Year
  Sex: Female
  Weight: 57 kg

DRUGS (30)
  1. CLINDAMYCIN [Concomitant]
     Active Substance: CLINDAMYCIN\CLINDAMYCIN PHOSPHATE
  2. LEVAQUIN [Concomitant]
     Active Substance: LEVOFLOXACIN
  3. ALBUTEROL. [Concomitant]
     Active Substance: ALBUTEROL
  4. NITROSTAT [Concomitant]
     Active Substance: NITROGLYCERIN
  5. CYCLOBENZAPRINE [Concomitant]
     Active Substance: CYCLOBENZAPRINE
  6. CARTIA XT [Concomitant]
     Active Substance: DILTIAZEM HYDROCHLORIDE
  7. SINGULAIR [Concomitant]
     Active Substance: MONTELUKAST SODIUM
  8. HIZENTRA [Suspect]
     Active Substance: HUMAN IMMUNOGLOBULIN G
     Indication: SELECTIVE IGG SUBCLASS DEFICIENCY
     Route: 058
  9. LIPITOR [Concomitant]
     Active Substance: ATORVASTATIN CALCIUM
  10. TOPIRAMATE. [Concomitant]
     Active Substance: TOPIRAMATE
  11. HYDROCODONE-ACETAMINOPHEN [Concomitant]
     Active Substance: ACETAMINOPHEN\HYDROCODONE
  12. VITAMIN D [Concomitant]
     Active Substance: CHOLECALCIFEROL
  13. EPIPEN [Concomitant]
     Active Substance: EPINEPHRINE
  14. SIMVASTATIN. [Concomitant]
     Active Substance: SIMVASTATIN
  15. MULTIVITAMINS AND IRON [Concomitant]
  16. ALL DAY CALCIUM [Concomitant]
  17. DIPHENHYDRAMINE. [Concomitant]
     Active Substance: DIPHENHYDRAMINE
  18. L-M-X [Concomitant]
  19. ZYRTEC [Concomitant]
     Active Substance: CETIRIZINE HYDROCHLORIDE
  20. PROAIR HFA [Concomitant]
     Active Substance: ALBUTEROL SULFATE
  21. EVISTA [Concomitant]
     Active Substance: RALOXIFENE HYDROCHLORIDE
  22. ESTRACE [Concomitant]
     Active Substance: ESTRADIOL
  23. MILK OF MAGNESIA [Concomitant]
     Active Substance: MAGNESIUM HYDROXIDE
  24. SPIRIVA [Concomitant]
     Active Substance: TIOTROPIUM BROMIDE MONOHYDRATE
  25. AMOXICILLIN. [Concomitant]
     Active Substance: AMOXICILLIN
  26. ASPIRIN. [Concomitant]
     Active Substance: ASPIRIN
  27. PROMETHAZINE [Concomitant]
     Active Substance: PROMETHAZINE\PROMETHAZINE HYDROCHLORIDE
  28. BUTALBITAL-ASA-CAFFEINE [Concomitant]
  29. SYMBICORT [Concomitant]
     Active Substance: BUDESONIDE\FORMOTEROL FUMARATE DIHYDRATE
  30. OMEPRAZOLE. [Concomitant]
     Active Substance: OMEPRAZOLE

REACTIONS (1)
  - Ear infection [Unknown]

NARRATIVE: CASE EVENT DATE: 201602
